FAERS Safety Report 4340422-0 (Version None)
Quarter: 2004Q2

REPORT INFORMATION
  Report Type: 
  Country: None (occurrence: None)
  Receive Date: 20040414
  Receipt Date: 20040330
  Transmission Date: 20050107
  Serious: Yes (Other)
  Sender: FDA-Public Use
  Company Number: CIP04000329

PATIENT
  Age: 39 Year
  Sex: Male

DRUGS (7)
  1. ASACOL [Suspect]
     Indication: CROHN'S DISEASE
     Dosage: SEE IMAGE
     Route: 048
     Dates: start: 20021008, end: 20030701
  2. ASACOL [Suspect]
     Indication: CROHN'S DISEASE
     Dosage: SEE IMAGE
     Route: 048
     Dates: start: 20030721, end: 20030724
  3. ASACOL [Suspect]
     Indication: CROHN'S DISEASE
     Dosage: SEE IMAGE
     Route: 048
     Dates: start: 20030101
  4. ASACOL [Suspect]
     Indication: CROHN'S DISEASE
     Dosage: SEE IMAGE
     Route: 048
     Dates: start: 20030201
  5. MULTIVIT (VITAMINS NOS) [Concomitant]
  6. FLONASE [Concomitant]
  7. PREDNISONE [Concomitant]

REACTIONS (17)
  - ABDOMINAL ABSCESS [None]
  - ABSCESS [None]
  - ALCOHOL USE [None]
  - BACK PAIN [None]
  - CHEST PAIN [None]
  - CONDITION AGGRAVATED [None]
  - CROHN'S DISEASE [None]
  - EYE PRURITUS [None]
  - HEART RATE INCREASED [None]
  - INSOMNIA [None]
  - INTESTINAL FISTULA [None]
  - INTESTINAL OBSTRUCTION [None]
  - PAIN [None]
  - PELVIC ABSCESS [None]
  - RED BLOOD CELL SEDIMENTATION RATE INCREASED [None]
  - RENAL PAIN [None]
  - WHITE BLOOD CELL COUNT INCREASED [None]
